FAERS Safety Report 4437533-8 (Version None)
Quarter: 2004Q3

REPORT INFORMATION
  Report Type: 
  Country: None (occurrence: None)
  Receive Date: 20040830
  Receipt Date: 20040830
  Transmission Date: 20050211
  Serious: Yes (Other)
  Sender: FDA-Public Use
  Company Number: None

PATIENT
  Age: 55 Year
  Sex: Male
  Weight: 95.709 kg

DRUGS (1)
  1. BACTRIM DS [Suspect]
     Indication: MULTIPLE MYELOMA
     Dosage: 1 TAB Q 12 HRS FOR 2 MTHS
     Dates: start: 20040812, end: 20040819

REACTIONS (1)
  - CANDIDIASIS [None]
